FAERS Safety Report 14678211 (Version 1)
Quarter: 2018Q1

REPORT INFORMATION
  Report Type: Spontaneous
  Country: US (occurrence: US)
  Receive Date: 20180326
  Receipt Date: 20180326
  Transmission Date: 20180509
  Serious: Yes (Hospitalization, Other)
  Sender: FDA-Public Use
  Company Number: US-ZYDUS-019412

PATIENT
  Age: 51 Year
  Sex: Female

DRUGS (2)
  1. BUTALBITAL/CAFFEINE/PARACETAMOL [Suspect]
     Active Substance: ACETAMINOPHEN\BUTALBITAL\CAFFEINE
     Indication: MIGRAINE
     Route: 065
  2. PROPRANOLOL [Suspect]
     Active Substance: PROPRANOLOL HYDROCHLORIDE
     Indication: MIGRAINE
     Route: 065

REACTIONS (15)
  - Anxiety [Recovered/Resolved]
  - Abdominal bruit [Recovered/Resolved]
  - Headache [Recovered/Resolved]
  - Dyschromatopsia [Recovered/Resolved]
  - Metanephrine urine increased [Recovered/Resolved]
  - Retinal haemorrhage [Recovered/Resolved]
  - Macular oedema [Recovered/Resolved]
  - Nausea [Recovered/Resolved]
  - Abdominal distension [Recovered/Resolved]
  - Normetanephrine urine increased [Recovered/Resolved]
  - Abdominal tenderness [Recovered/Resolved]
  - Condition aggravated [Recovered/Resolved]
  - Phaeochromocytoma [Recovered/Resolved]
  - Vomiting [Recovered/Resolved]
  - Visual field defect [Recovered/Resolved]
